FAERS Safety Report 9535968 (Version 2)
Quarter: 2013Q3

REPORT INFORMATION
  Report Type: Report from Study
  Country: DE (occurrence: DE)
  Receive Date: 20130919
  Receipt Date: 20130923
  Transmission Date: 20140515
  Serious: Yes (Life-Threatening, Hospitalization)
  Sender: FDA-Public Use
  Company Number: DE-ROCHE-1277296

PATIENT
  Age: 64 Year
  Sex: Male
  Weight: 79 kg

DRUGS (14)
  1. BEVACIZUMAB [Suspect]
     Indication: RECTAL CANCER
     Route: 065
     Dates: start: 20101215, end: 20110427
  2. AMPHO MORONAL [Concomitant]
     Route: 048
  3. TARGIN [Concomitant]
     Indication: PAIN
     Dosage: 10/5
     Route: 048
     Dates: start: 20110521
  4. TARGIN [Concomitant]
     Dosage: 20/10
     Route: 048
     Dates: start: 20110521
  5. MACROGOL [Concomitant]
     Route: 048
  6. BIFITERAL [Concomitant]
     Route: 048
  7. LYRICA [Concomitant]
     Route: 065
  8. LYRICA [Concomitant]
     Route: 065
  9. PANTOZOL (GERMANY) [Concomitant]
     Route: 065
  10. EFFENTORA (GERMANY) [Concomitant]
     Indication: PAIN
     Route: 048
  11. NOVAMINSULFON [Concomitant]
     Route: 048
     Dates: start: 20110521
  12. SEVREDOL [Concomitant]
     Route: 048
  13. OXALIPLATIN [Concomitant]
     Indication: RECTAL CANCER
     Route: 065
     Dates: start: 20101215, end: 20110330
  14. IRINOTECAN [Concomitant]
     Indication: RECTAL CANCER
     Route: 065
     Dates: start: 20110427

REACTIONS (3)
  - Ileus [Recovered/Resolved with Sequelae]
  - Abscess [Recovered/Resolved with Sequelae]
  - Hernia obstructive [Recovered/Resolved with Sequelae]
